FAERS Safety Report 22391486 (Version 3)
Quarter: 2023Q2

REPORT INFORMATION
  Report Type: Report from Study
  Country: CO (occurrence: CO)
  Receive Date: 20230601
  Receipt Date: 20230616
  Transmission Date: 20230722
  Serious: Yes (Other)
  Sender: FDA-Public Use
  Company Number: CO-002147023-NVSC2023CO020689

PATIENT
  Sex: Male

DRUGS (1)
  1. COSENTYX [Suspect]
     Active Substance: SECUKINUMAB
     Indication: Psoriasis
     Dosage: 300 MG, QMO
     Route: 058

REACTIONS (12)
  - Choking [Unknown]
  - Skin laceration [Recovered/Resolved]
  - Skin discolouration [Unknown]
  - Skin exfoliation [Unknown]
  - Cough [Recovered/Resolved]
  - Influenza [Unknown]
  - General physical health deterioration [Unknown]
  - Skin laceration [Unknown]
  - Injection site haemorrhage [Unknown]
  - Hypersensitivity [Unknown]
  - Pruritus [Not Recovered/Not Resolved]
  - Drug ineffective [Unknown]
